FAERS Safety Report 8779292 (Version 2)
Quarter: 2012Q4

REPORT INFORMATION
  Report Type: Report from Study
  Country: DE (occurrence: DE)
  Receive Date: 20120912
  Receipt Date: 20120925
  Transmission Date: 20130627
  Serious: Yes (Life-Threatening, Hospitalization)
  Sender: FDA-Public Use
  Company Number: DE-ROCHE-1119899

PATIENT
  Age: 60 Year
  Sex: Male
  Weight: 120 kg

DRUGS (9)
  1. XELODA [Suspect]
     Indication: COLON CANCER
     Dosage: Date of most recent dose administered prior to SAE:23/Dec/2012, at 2000 mg
     Route: 048
     Dates: start: 20091118
  2. OXALIPLATIN [Suspect]
     Indication: COLON CANCER
     Dosage: Last dose prior to SAE on 16/Dec/2009 at dose of 100 mg
     Route: 042
     Dates: start: 20091118
  3. PANTOZOL [Concomitant]
     Dosage: Dose: 1-0-1, conc :40mg
     Route: 048
     Dates: start: 20100201, end: 20100325
  4. LASIX [Concomitant]
     Dosage: every day
     Route: 042
     Dates: start: 20100203, end: 20100325
  5. METFORMIN [Concomitant]
     Indication: DIABETES MELLITUS
     Dosage: 1-0-1
     Route: 048
     Dates: start: 20100304
  6. BISOPROLOL [Concomitant]
     Indication: HYPERTENSION
     Dosage: 1-0-0
     Route: 048
     Dates: start: 20100201
  7. FLUOXETIN [Concomitant]
     Indication: DEPRESSION
     Dosage: 1-0-0
     Route: 048
     Dates: start: 20100201
  8. ENALAPRIL [Concomitant]
     Indication: HYPERTENSION
     Dosage: 0-12 ,5-20
     Route: 048
     Dates: start: 20100201
  9. TOREM [Concomitant]
     Indication: HYPERTENSION
     Route: 048
     Dates: start: 20100201

REACTIONS (1)
  - Anastomotic leak [Recovered/Resolved]
